FAERS Safety Report 11112176 (Version 2)
Quarter: 2015Q2

REPORT INFORMATION
  Report Type: Report from Study
  Country: DE (occurrence: DE)
  Receive Date: 20150514
  Receipt Date: 20150623
  Transmission Date: 20150821
  Serious: Yes (Hospitalization)
  Sender: FDA-Public Use
  Company Number: DE-ROCHE-1576578

PATIENT
  Age: 5 Year
  Sex: Male
  Weight: 16.6 kg

DRUGS (2)
  1. SOMATROPIN [Suspect]
     Active Substance: SOMATROPIN
     Indication: FOETAL GROWTH RESTRICTION
     Dosage: TO THE THIGH, STRENGTH: 10 MG/ 2ML.
     Route: 058
     Dates: start: 20140327
  2. SOMATROPIN [Suspect]
     Active Substance: SOMATROPIN
     Dosage: STRENGTH: 10 MG/ 2ML, RECENT DOSE ON 09/APR/2015 AT ABOUT 19:00
     Route: 058

REACTIONS (5)
  - Somnolence [Recovered/Resolved]
  - Seizure [Recovered/Resolved]
  - Off label use [Unknown]
  - Pain [Recovered/Resolved]
  - Syncope [Recovered/Resolved]

NARRATIVE: CASE EVENT DATE: 20150410
